FAERS Safety Report 26194852 (Version 1)
Quarter: 2025Q4

REPORT INFORMATION
  Report Type: Spontaneous
  Country: EU (occurrence: EU)
  Receive Date: 20251224
  Receipt Date: 20251224
  Transmission Date: 20260118
  Serious: Yes (Other)
  Sender: TEVA
  Company Number: None

PATIENT
  Age: 56 Year
  Sex: Male
  Weight: 60 kg

DRUGS (3)
  1. DOCETAXEL [Suspect]
     Active Substance: DOCETAXEL
     Indication: Product used for unknown indication
     Route: 042
     Dates: start: 20210202, end: 20210202
  2. OXALIPLATIN [Suspect]
     Active Substance: OXALIPLATIN
     Indication: Product used for unknown indication
     Route: 042
     Dates: start: 20210202, end: 20210202
  3. FLUOROURACIL [Suspect]
     Active Substance: FLUOROURACIL
     Indication: Product used for unknown indication
     Route: 042
     Dates: start: 20210202, end: 20210203

REACTIONS (2)
  - Neutropenia [Recovered/Resolved with Sequelae]
  - Anaemia [Recovered/Resolved with Sequelae]

NARRATIVE: CASE EVENT DATE: 20210316
